FAERS Safety Report 24061408 (Version 2)
Quarter: 2024Q3

REPORT INFORMATION
  Report Type: Spontaneous
  Country: US (occurrence: US)
  Receive Date: 20240708
  Receipt Date: 20240715
  Transmission Date: 20241016
  Serious: Yes (Hospitalization, Other)
  Sender: KARYOPHARM THERAPEUTICS
  Company Number: US-KARYOPHARM-2024KPT001279

PATIENT

DRUGS (20)
  1. XPOVIO [Suspect]
     Active Substance: SELINEXOR
     Indication: Plasma cell myeloma
     Dosage: 40 MG, WEEKLY
     Route: 048
     Dates: start: 20240704
  2. XPOVIO [Suspect]
     Active Substance: SELINEXOR
     Indication: Renal cancer
  3. FLUTICASONE PROPIONATE\SALMETEROL XINAFOATE [Concomitant]
     Active Substance: FLUTICASONE PROPIONATE\SALMETEROL XINAFOATE
  4. DULERA [Concomitant]
     Active Substance: FORMOTEROL FUMARATE DIHYDRATE\MOMETASONE FUROATE
  5. ALBUTEROL SULFATE [Concomitant]
     Active Substance: ALBUTEROL SULFATE
  6. CLONIDON [Concomitant]
  7. APREPITANT [Concomitant]
     Active Substance: APREPITANT
  8. SEVELAMER CARBONATE [Concomitant]
     Active Substance: SEVELAMER CARBONATE
  9. TOUJEO [Concomitant]
     Active Substance: INSULIN GLARGINE
  10. PREDNISONE [Concomitant]
     Active Substance: PREDNISONE
  11. NOVOLOG [Concomitant]
     Active Substance: INSULIN ASPART
  12. LISINOPRIL [Concomitant]
     Active Substance: LISINOPRIL
  13. HYDRALAZINE HCL [Concomitant]
     Active Substance: HYDRALAZINE HYDROCHLORIDE
  14. ELIQUIS [Concomitant]
     Active Substance: APIXABAN
  15. DARZALEX [Concomitant]
     Active Substance: DARATUMUMAB
  16. CARVEDILOL [Concomitant]
     Active Substance: CARVEDILOL
  17. BUMETANIDE [Concomitant]
     Active Substance: BUMETANIDE
  18. ATORVASTATIN [Concomitant]
     Active Substance: ATORVASTATIN
  19. AMLODIPINE [Concomitant]
     Active Substance: AMLODIPINE BESYLATE
  20. ALLOPURINOL [Concomitant]
     Active Substance: ALLOPURINOL

REACTIONS (4)
  - Pain [Recovering/Resolving]
  - Plasma cell leukaemia [Unknown]
  - Spleen disorder [Unknown]
  - Haemoglobin decreased [Unknown]

NARRATIVE: CASE EVENT DATE: 20240701
